FAERS Safety Report 23754908 (Version 2)
Quarter: 2025Q2

REPORT INFORMATION
  Report Type: Spontaneous
  Country: US (occurrence: US)
  Receive Date: 20240418
  Receipt Date: 20250602
  Transmission Date: 20250717
  Serious: No
  Sender: DR REDDYS
  Company Number: US-E2BLSMVVAL-SPO/USA/24/0005415

PATIENT
  Sex: Female

DRUGS (1)
  1. FLUOROURACIL [Suspect]
     Active Substance: FLUOROURACIL
     Indication: Product used for unknown indication
     Route: 065
     Dates: end: 20240329

REACTIONS (3)
  - Swelling face [Recovering/Resolving]
  - Application site pruritus [Unknown]
  - Application site erythema [Unknown]
